FAERS Safety Report 18253536 (Version 2)
Quarter: 2020Q4

REPORT INFORMATION
  Report Type: Spontaneous
  Country: US (occurrence: US)
  Receive Date: 20200910
  Receipt Date: 20201022
  Transmission Date: 20210113
  Serious: No
  Sender: FDA-Public Use
  Company Number: US-JNJFOC-20200908121

PATIENT
  Age: 44 Year
  Sex: Male
  Weight: 72.64 kg

DRUGS (1)
  1. MENS ROGAINE EXTRA STRENGTH [Suspect]
     Active Substance: MINOXIDIL
     Indication: ALOPECIA
     Route: 061
     Dates: start: 20200701, end: 20200705

REACTIONS (3)
  - Application site scab [Recovered/Resolved]
  - Application site rash [Recovered/Resolved]
  - Application site pustules [Recovered/Resolved]

NARRATIVE: CASE EVENT DATE: 20200701
